FAERS Safety Report 6023509-6 (Version None)
Quarter: 2008Q4

REPORT INFORMATION
  Report Type: 
  Country: None (occurrence: None)
  Receive Date: 20081230
  Receipt Date: 20081223
  Transmission Date: 20090506
  Serious: Yes (Hospitalization)
  Sender: FDA-Public Use
  Company Number: PT-WYE-H07430508

PATIENT
  Age: 64 Year
  Sex: Female

DRUGS (10)
  1. CORDARONE [Suspect]
     Route: 048
  2. NEBIVOLOL HCL [Interacting]
     Dosage: UNSPECIFIED
     Route: 048
  3. FUROSEMIDE [Concomitant]
     Dosage: UNSPECIFIED
     Route: 048
  4. WARFARIN [Concomitant]
     Route: 048
  5. CLOXAZOLAM [Concomitant]
  6. SPIRONOLACTONE [Concomitant]
     Dosage: UNSPECIFIED
     Route: 048
  7. AMLODIPINE [Concomitant]
     Dosage: UNSPECIFIED
     Route: 048
  8. LEVOTHYROXINE [Concomitant]
     Route: 048
  9. DIGOXIN [Interacting]
     Dosage: UNSPECIFIED
     Route: 048
  10. ESCITALOPRAM [Concomitant]
     Dosage: UNSPECIFIED
     Route: 048

REACTIONS (4)
  - BRADYCARDIA [None]
  - CARDIAC FAILURE CONGESTIVE [None]
  - CONDITION AGGRAVATED [None]
  - DRUG INTERACTION [None]
